FAERS Safety Report 6101200-5 (Version None)
Quarter: 2009Q1

REPORT INFORMATION
  Report Type: 
  Country: None (occurrence: None)
  Receive Date: 20090304
  Receipt Date: 20090223
  Transmission Date: 20090719
  Serious: Yes (Death, Hospitalization, Other)
  Sender: FDA-Public Use
  Company Number: US-ELI_LILLY_AND_COMPANY-US200902004053

PATIENT
  Sex: Male

DRUGS (8)
  1. BYETTA [Suspect]
     Indication: TYPE 2 DIABETES MELLITUS
     Dosage: 5 UG, 2/D
     Route: 058
     Dates: start: 20060711, end: 20060814
  2. BYETTA [Suspect]
     Dosage: 10 UG, 2/D
     Route: 058
     Dates: start: 20060814, end: 20080124
  3. LOTREL [Concomitant]
     Indication: HYPERTENSION
     Dosage: UNK, DAILY (1/D)
  4. ACTOS [Concomitant]
     Indication: TYPE 2 DIABETES MELLITUS
     Dosage: 15 MG, DAILY (1/D)
     Route: 048
  5. TRICOR [Concomitant]
     Indication: LIPIDS INCREASED
     Dosage: 145 MG, DAILY (1/D)
     Route: 048
  6. METFORMIN HCL [Concomitant]
     Indication: TYPE 2 DIABETES MELLITUS
     Dosage: 1000 MG, 2/D
     Route: 048
  7. AMARYL [Concomitant]
     Indication: TYPE 2 DIABETES MELLITUS
     Dosage: 2 MG, 2/D
     Route: 048
  8. LANTUS [Concomitant]
     Indication: DIABETES MELLITUS
     Dosage: 35 UG, EACH EVENING
     Route: 058

REACTIONS (2)
  - METASTASES TO LIVER [None]
  - PANCREATIC NEUROENDOCRINE TUMOUR [None]
